FAERS Safety Report 23346427 (Version 1)
Quarter: 2023Q4

REPORT INFORMATION
  Report Type: Spontaneous
  Country: FR (occurrence: FR)
  Receive Date: 20231228
  Receipt Date: 20231228
  Transmission Date: 20240110
  Serious: Yes (Hospitalization, Other)
  Sender: FDA-Public Use
  Company Number: FR-SUN PHARMACEUTICAL INDUSTRIES LTD-2023R1-425524

PATIENT
  Age: 61 Year
  Sex: Male
  Weight: 57 kg

DRUGS (3)
  1. LEVOFLOXACIN [Suspect]
     Active Substance: LEVOFLOXACIN
     Indication: Bronchitis
     Dosage: 250 MILLIGRAM, BID
     Route: 048
     Dates: start: 20231120, end: 20231128
  2. CIPROFLOXACIN [Suspect]
     Active Substance: CIPROFLOXACIN
     Indication: Bronchitis
     Dosage: 500 MILLIGRAM, BID
     Route: 048
     Dates: start: 20231115, end: 20231120
  3. MEROPENEM [Suspect]
     Active Substance: MEROPENEM
     Indication: Bronchitis
     Dosage: 250 MILLIGRAM, BID
     Route: 048
     Dates: start: 20231120, end: 20231128

REACTIONS (2)
  - Hepatic cytolysis [Not Recovered/Not Resolved]
  - Condition aggravated [Not Recovered/Not Resolved]

NARRATIVE: CASE EVENT DATE: 20231128
